FAERS Safety Report 5121758-2 (Version None)
Quarter: 2006Q4

REPORT INFORMATION
  Report Type: 
  Country: None (occurrence: None)
  Receive Date: 20061003
  Receipt Date: 20060914
  Transmission Date: 20070319
  Serious: Yes (Life-Threatening)
  Sender: FDA-Public Use
  Company Number: DSA_28755_2006

PATIENT
  Sex: Female

DRUGS (4)
  1. ATIVAN [Suspect]
     Indication: SLEEP DISORDER
     Dosage: 1 MG Q DAY; PO
     Route: 048
  2. STARNOC [Suspect]
     Indication: SLEEP DISORDER
     Dosage: 10 MG QHS; PO
     Route: 048
  3. DEMEROL [Suspect]
     Indication: ANALGESIC EFFECT
     Dosage: DF, PRN,
  4. VERSED [Suspect]
     Indication: ANALGESIC EFFECT
     Dosage: DF, PRN,

REACTIONS (5)
  - CIRCULATORY COLLAPSE [None]
  - CYANOSIS [None]
  - DRUG INTERACTION [None]
  - PULSE ABSENT [None]
  - RESPIRATORY ARREST [None]
